FAERS Safety Report 21838848 (Version 6)
Quarter: 2023Q1

REPORT INFORMATION
  Report Type: Spontaneous
  Country: PT (occurrence: PT)
  Receive Date: 20230109
  Receipt Date: 20230313
  Transmission Date: 20230418
  Serious: Yes (Hospitalization, Other)
  Sender: FDA-Public Use
  Company Number: PT-MYLANLABS-2022M1118463

PATIENT
  Age: 69 Year
  Sex: Male

DRUGS (5)
  1. APIXABAN [Interacting]
     Active Substance: APIXABAN
     Indication: Cerebrovascular accident
     Dosage: UNK
     Route: 065
  2. APIXABAN [Interacting]
     Active Substance: APIXABAN
     Indication: Anticoagulant therapy
  3. APIXABAN [Interacting]
     Active Substance: APIXABAN
     Indication: Cerebrovascular accident prophylaxis
  4. ENOXAPARIN [Interacting]
     Active Substance: ENOXAPARIN
     Indication: Thrombosis prophylaxis
     Dosage: UNK
     Route: 065
  5. WARFARIN [Concomitant]
     Active Substance: WARFARIN
     Indication: Anticoagulant therapy
     Dosage: UNK
     Route: 065

REACTIONS (5)
  - Haemodynamic instability [Unknown]
  - Haematuria [Unknown]
  - Epistaxis [Unknown]
  - Drug interaction [Unknown]
  - Off label use [Unknown]
